FAERS Safety Report 8124290-7 (Version None)
Quarter: 2012Q1

REPORT INFORMATION
  Report Type: 
  Country: None (occurrence: None)
  Receive Date: 20120209
  Receipt Date: 20120206
  Transmission Date: 20120608
  Serious: Yes (Hospitalization, Disabling, Other)
  Sender: FDA-Public Use
  Company Number: US-PFIZER INC-2012032846

PATIENT
  Sex: Female
  Weight: 36.281 kg

DRUGS (13)
  1. CALCIUM CARBONATE [Interacting]
     Dosage: UNK, 2XDAY
     Dates: start: 20111201
  2. LEVOTHYROXINE SODIUM [Interacting]
     Indication: THYROID HORMONE REPLACEMENT THERAPY
     Dosage: 100 G, DAILY
     Dates: start: 19950101
  3. IPRATROPIUM BROMIDE AND ALBUTEROL SULFATE [Interacting]
     Indication: DYSPNOEA
     Dosage: UNK, 4X/DAY
     Dates: start: 20060101
  4. CHANTIX [Interacting]
     Dosage: 0.5 MG, DAILY
     Route: 048
     Dates: start: 20120101, end: 20120101
  5. NEXIUM [Interacting]
     Indication: GASTRIC DISORDER
     Dosage: DAILY
     Dates: start: 20090101
  6. SINGULAIR [Interacting]
     Indication: DYSPNOEA
     Dosage: DAILY
     Dates: start: 20080101
  7. HYDROCODONE BITARTRATE [Interacting]
     Indication: ARTHRITIS
     Dosage: UNK, 4X/DAY
     Dates: start: 20110101
  8. ADVAIR DISKUS 100/50 [Interacting]
     Indication: DYSPNOEA
     Dosage: 500/50 UG, 4X/DAY
     Dates: start: 20070101
  9. METOCLOPRAMIDE [Interacting]
     Indication: GASTRIC DISORDER
     Dosage: UNK, 3X/DAY
     Dates: start: 20111001
  10. ASPIRIN [Interacting]
     Dosage: 325 MG, DAILY
     Dates: start: 20111001
  11. CHANTIX [Suspect]
     Indication: SMOKING CESSATION THERAPY
     Dosage: 0.5 MG, DAILY
     Route: 048
     Dates: start: 20110901, end: 20110901
  12. KLONOPIN [Interacting]
     Indication: NERVOUS SYSTEM DISORDER
     Dosage: UNK, 4X/DAY
     Dates: start: 20110101
  13. PROAIR HFA [Interacting]
     Indication: DYSPNOEA
     Dosage: UNK, 4X/DAY
     Dates: start: 20070101

REACTIONS (6)
  - GAIT DISTURBANCE [None]
  - ABASIA [None]
  - SPEECH DISORDER [None]
  - THINKING ABNORMAL [None]
  - DRUG INTERACTION [None]
  - CEREBROVASCULAR ACCIDENT [None]
